FAERS Safety Report 4293623-4 (Version None)
Quarter: 2004Q1

REPORT INFORMATION
  Report Type: 
  Country: None (occurrence: None)
  Receive Date: 20040210
  Receipt Date: 20040126
  Transmission Date: 20041129
  Serious: Yes (Death)
  Sender: FDA-Public Use
  Company Number: 02100-JPN-04-0019

PATIENT
  Age: 79 Year
  Sex: Female

DRUGS (2)
  1. CILOSTAZOL [Suspect]
     Indication: LACUNAR INFARCTION
     Dosage: 200 MG ORAL
     Route: 048
     Dates: start: 20040114, end: 20040101
  2. CILOSTAZOL [Suspect]
     Indication: PROPHYLAXIS
     Dosage: 200 MG ORAL
     Route: 048
     Dates: start: 20040114, end: 20040101

REACTIONS (1)
  - CEREBRAL HAEMORRHAGE [None]
